FAERS Safety Report 22351204 (Version 3)
Quarter: 2024Q2

REPORT INFORMATION
  Report Type: Spontaneous
  Country: US (occurrence: US)
  Receive Date: 20230522
  Receipt Date: 20240521
  Transmission Date: 20240716
  Serious: No
  Sender: FDA-Public Use
  Company Number: US-Stemline Therapeutics, Inc.-2023ST000403

PATIENT
  Age: 51 Year
  Sex: Female

DRUGS (3)
  1. ORSERDU [Suspect]
     Active Substance: ELACESTRANT
     Indication: Product used for unknown indication
     Route: 048
     Dates: start: 20230317
  2. ORSERDU [Suspect]
     Active Substance: ELACESTRANT
     Route: 048
  3. ORSERDU [Suspect]
     Active Substance: ELACESTRANT
     Route: 048
     Dates: start: 202303, end: 202307

REACTIONS (9)
  - Adverse event [Recovered/Resolved]
  - Product dose omission issue [Unknown]
  - Inflammation [Unknown]
  - Peripheral swelling [Unknown]
  - Swelling face [Unknown]
  - Increased appetite [Unknown]
  - Weight increased [Unknown]
  - Rash erythematous [Recovering/Resolving]
  - Cough [Not Recovered/Not Resolved]

NARRATIVE: CASE EVENT DATE: 20230326
